FAERS Safety Report 4954345-7 (Version None)
Quarter: 2006Q1

REPORT INFORMATION
  Report Type: 
  Country: None (occurrence: None)
  Receive Date: 20060327
  Receipt Date: 20060208
  Transmission Date: 20060701
  Serious: Yes (Other)
  Sender: FDA-Public Use
  Company Number: PHEH2006US01979

PATIENT
  Age: 60 Year
  Sex: Female

DRUGS (11)
  1. PREMARIN [Concomitant]
  2. ASPIRIN [Concomitant]
  3. ATIVAN [Concomitant]
  4. CENTRUM SILVER [Concomitant]
  5. CALCIUM WITH VITAMIN D [Concomitant]
  6. VIACTIV [Concomitant]
  7. DOMPERIDONE [Concomitant]
  8. ZELNORM [Suspect]
     Indication: IRRITABLE BOWEL SYNDROME
     Dosage: 2 MG, BID
     Dates: start: 20060126, end: 20060221
  9. GLEEVEC [Suspect]
     Indication: CHRONIC MYELOID LEUKAEMIA
     Dosage: 400 MG, QD
     Dates: start: 20051114
  10. TOPROL-XL [Concomitant]
     Dosage: 100 MG, UNK
  11. OMEPRAZOLE [Concomitant]

REACTIONS (4)
  - ALANINE AMINOTRANSFERASE INCREASED [None]
  - ASPARTATE AMINOTRANSFERASE INCREASED [None]
  - BILIRUBIN CONJUGATED INCREASED [None]
  - BLOOD ALKALINE PHOSPHATASE INCREASED [None]
